FAERS Safety Report 8575442-3 (Version None)
Quarter: 2012Q3

REPORT INFORMATION
  Report Type: 
  Country: None (occurrence: None)
  Receive Date: 20120807
  Receipt Date: 20120730
  Transmission Date: 20120928
  Serious: Yes (Death, Other)
  Sender: FDA-Public Use
  Company Number: PHHY2012JP029397

PATIENT
  Sex: Male
  Weight: 78 kg

DRUGS (7)
  1. CLEANAL [Concomitant]
     Indication: METASTATIC RENAL CELL CARCINOMA
     Dosage: 600 MG, UNK
     Route: 048
     Dates: start: 20111214
  2. CANDESARTAN CILEXETIL [Concomitant]
     Indication: PROPHYLAXIS
     Dosage: 4 MG, UNK
     Route: 048
     Dates: start: 20111209
  3. REBAMIPIDE [Concomitant]
     Indication: PROPHYLAXIS
     Dosage: 300 MG, UNK
     Route: 048
     Dates: start: 20111204
  4. AFINITOR [Suspect]
     Indication: METASTATIC RENAL CELL CARCINOMA
     Dosage: 10 MG, DAILY
     Route: 048
     Dates: start: 20120228, end: 20120319
  5. AMLODIPINE BESYLATE [Concomitant]
     Indication: PROPHYLAXIS
     Dosage: 5 MG, UNK
     Route: 048
     Dates: start: 20111201
  6. SUNITINIB MALATE [Concomitant]
     Indication: METASTATIC RENAL CELL CARCINOMA
     Dosage: 12.5 MG, UNK
     Route: 048
     Dates: start: 20111123, end: 20120227
  7. WHITE PETROLATUM [Concomitant]
     Indication: PROPHYLAXIS
     Route: 062
     Dates: start: 20120229

REACTIONS (6)
  - HAEMOGLOBIN DECREASED [None]
  - NEOPLASM PROGRESSION [None]
  - HAEMATOCRIT DECREASED [None]
  - C-REACTIVE PROTEIN INCREASED [None]
  - METASTATIC RENAL CELL CARCINOMA [None]
  - RED BLOOD CELL COUNT DECREASED [None]
